FAERS Safety Report 8511654-2 (Version None)
Quarter: 2012Q3

REPORT INFORMATION
  Report Type: 
  Country: None (occurrence: None)
  Receive Date: 20120716
  Receipt Date: 20120710
  Transmission Date: 20120928
  Serious: Yes (Other)
  Sender: FDA-Public Use
  Company Number: US-PFIZER INC-2012167059

PATIENT
  Sex: Male
  Weight: 74.38 kg

DRUGS (6)
  1. LIPITOR [Suspect]
     Dosage: 20 MG, DAILY
     Dates: start: 19990101
  2. ATORVASTATIN CALCIUM [Suspect]
     Dosage: UNK
  3. METFORMIN [Concomitant]
     Indication: DIABETES MELLITUS
     Dosage: 500 MG TWO TIMES A DAY
  4. LASIX [Concomitant]
     Indication: OEDEMA PERIPHERAL
     Dosage: 40 MG, DAILY
  5. NIASPAN [Concomitant]
     Dosage: 500 MG, DAILY
  6. LIPITOR [Suspect]
     Dosage: 20 MG, DAILY

REACTIONS (3)
  - CORONARY ARTERY DISEASE [None]
  - MYOCARDIAL INFARCTION [None]
  - ANGIOPATHY [None]
